FAERS Safety Report 5641587-0 (Version None)
Quarter: 2008Q1

REPORT INFORMATION
  Report Type: 
  Country: None (occurrence: None)
  Receive Date: 20080227
  Receipt Date: 20071119
  Transmission Date: 20080703
  Serious: No
  Sender: FDA-Public Use
  Company Number: A0695091A

PATIENT
  Age: 78 Year
  Sex: Female

DRUGS (1)
  1. NICORETTE [Suspect]
     Dates: start: 20071110, end: 20071111

REACTIONS (4)
  - APHTHOUS STOMATITIS [None]
  - ORAL DISCOMFORT [None]
  - ORAL MUCOSAL ERUPTION [None]
  - ORAL PAIN [None]
